FAERS Safety Report 16813821 (Version 1)
Quarter: 2019Q3

REPORT INFORMATION
  Report Type: Report from Study
  Country: JP (occurrence: JP)
  Receive Date: 20190917
  Receipt Date: 20190917
  Transmission Date: 20191005
  Serious: Yes (Hospitalization)
  Sender: FDA-Public Use
  Company Number: JP-AMGEN-JPNCT2018157459

PATIENT
  Age: 73 Year
  Sex: Male

DRUGS (31)
  1. DARBEPOETIN ALFA [Suspect]
     Active Substance: DARBEPOETIN ALFA
     Dosage: 240 MICROGRAM, QWK
     Route: 058
     Dates: start: 20170217, end: 20170323
  2. BELSOMRA [Concomitant]
     Active Substance: SUVOREXANT
     Dosage: 15 MG
     Route: 048
     Dates: end: 20180207
  3. BONZOL [Concomitant]
     Active Substance: LANSOPRAZOLE
     Indication: MYELODYSPLASTIC SYNDROME
     Dosage: 200 MG
     Route: 048
     Dates: start: 20180510
  4. DARBEPOETIN ALFA [Suspect]
     Active Substance: DARBEPOETIN ALFA
     Dosage: 240 MICROGRAM, QWK
     Route: 058
     Dates: start: 20170406, end: 20170427
  5. CLENAFIN [Concomitant]
     Active Substance: EFINACONAZOLE
     Indication: DERMATOPHYTOSIS OF NAIL
     Dosage: 4 MILLILITER
     Route: 061
  6. NAUZELIN [Concomitant]
     Active Substance: DOMPERIDONE
     Dosage: 30 MG
     Route: 048
     Dates: start: 20170821, end: 20170824
  7. PREDONINE [Concomitant]
     Active Substance: PREDNISOLONE
     Indication: MYELODYSPLASTIC SYNDROME
     Dosage: 40 MG
     Route: 048
     Dates: start: 20180301, end: 20180328
  8. DARBEPOETIN ALFA [Suspect]
     Active Substance: DARBEPOETIN ALFA
     Indication: MYELODYSPLASTIC SYNDROME
     Dosage: 240 MICROGRAM, QWK
     Route: 058
     Dates: start: 20161110, end: 20170202
  9. FEBURIC [Concomitant]
     Active Substance: FEBUXOSTAT
     Indication: HYPERURICAEMIA
     Dosage: 10 MG
     Route: 048
     Dates: end: 20170419
  10. CLENAFIN [Concomitant]
     Active Substance: EFINACONAZOLE
     Indication: DERMATOPHYTOSIS OF NAIL
     Dosage: 4 ML
     Route: 061
  11. FRANDOL [Concomitant]
     Active Substance: ISOSORBIDE DINITRATE
     Dosage: 40 MG
     Dates: start: 20170807, end: 20171020
  12. PREDONINE [Concomitant]
     Active Substance: PREDNISOLONE
     Dosage: 10 MG
     Route: 048
     Dates: start: 20180409, end: 20180502
  13. DAIPHEN [Concomitant]
     Active Substance: SULFAMETHOXAZOLE\TRIMETHOPRIM
     Dosage: 1 DF
     Route: 048
     Dates: start: 20180301, end: 20180411
  14. DARBEPOETIN ALFA [Suspect]
     Active Substance: DARBEPOETIN ALFA
     Dosage: 240 MICROGRAM, QWK
     Route: 058
     Dates: start: 20170502
  15. BELSOMRA [Concomitant]
     Active Substance: SUVOREXANT
     Indication: INSOMNIA
     Dosage: 15 MILLIGRAM
     Route: 048
  16. FUROSEMIDE. [Concomitant]
     Active Substance: FUROSEMIDE
     Indication: CARDIAC FAILURE CONGESTIVE
     Dosage: 40 MILLIGRAM
     Route: 048
  17. FUROSEMIDE. [Concomitant]
     Active Substance: FUROSEMIDE
     Dosage: 40 MG
     Route: 048
     Dates: end: 20180314
  18. LANSOPRAZOLE. [Concomitant]
     Active Substance: LANSOPRAZOLE
     Dosage: 15 MG
     Route: 048
     Dates: start: 20170506, end: 20170511
  19. PRIMOBOLAN-DEPOT [Concomitant]
     Active Substance: METHENOLONE ENANTHATE
     Indication: MYELODYSPLASTIC SYNDROME
     Dosage: 15 MILLIGRAM
     Route: 048
     Dates: start: 20171201
  20. ZOLPIDEM TARTRATE. [Concomitant]
     Active Substance: ZOLPIDEM TARTRATE
     Indication: INSOMNIA
     Dosage: 10 MG
     Route: 048
     Dates: start: 20180208
  21. JADENU [Concomitant]
     Active Substance: DEFERASIROX
     Dosage: 450 MG
     Route: 048
     Dates: start: 20180517
  22. SOLULACT [Concomitant]
     Dosage: UNK
     Route: 065
     Dates: start: 20170819, end: 20170819
  23. LOXOPROFEN SODIUM [Concomitant]
     Active Substance: LOXOPROFEN SODIUM
     Dosage: 1 DF
     Route: 048
     Dates: start: 20170506, end: 20170511
  24. ZINC. [Concomitant]
     Active Substance: ZINC
     Dosage: 50 MG
     Route: 048
     Dates: start: 20180628
  25. MEYLON [Concomitant]
     Active Substance: SODIUM BICARBONATE
     Dosage: UNK
     Route: 065
     Dates: start: 20170819, end: 20170819
  26. EXJADE [Suspect]
     Active Substance: DEFERASIROX
     Indication: PRODUCT USED FOR UNKNOWN INDICATION
     Dosage: 1625 MILLIGRAM
     Route: 048
     Dates: start: 20180104, end: 20180117
  27. SPIRONOLACTONE. [Concomitant]
     Active Substance: SPIRONOLACTONE
     Indication: CARDIAC FAILURE CONGESTIVE
     Dosage: 50 MG
     Route: 048
     Dates: start: 20170427
  28. DIART [Concomitant]
     Active Substance: AZOSEMIDE
     Indication: CARDIAC FAILURE CONGESTIVE
     Dosage: 30 MG
     Route: 048
     Dates: start: 20170511, end: 20170719
  29. SOLULACT [Concomitant]
     Dosage: 500 ML
     Route: 065
     Dates: start: 20180126, end: 20180126
  30. SIGMART [Concomitant]
     Active Substance: NICORANDIL
     Dosage: 15 MG
     Route: 048
     Dates: start: 20170824, end: 20171020
  31. MERISLON [Concomitant]
     Active Substance: BETAHISTINE MESILATE
     Dosage: 18 MILLIGRAM
     Route: 048
     Dates: start: 20170821, end: 20170824

REACTIONS (13)
  - Aspartate aminotransferase increased [Recovered/Resolved]
  - Chest discomfort [Recovering/Resolving]
  - Cough [Recovered/Resolved]
  - Dysgeusia [Not Recovered/Not Resolved]
  - Alanine aminotransferase increased [Recovered/Resolved]
  - Malaise [Recovering/Resolving]
  - Erythema [Recovered/Resolved]
  - Dizziness [Recovered/Resolved]
  - Chest discomfort [Recovered/Resolved]
  - Dizziness [Recovered/Resolved]
  - Neuralgia [Recovered/Resolved]
  - Hyperferritinaemia [Not Recovered/Not Resolved]
  - Rib fracture [Recovered/Resolved]

NARRATIVE: CASE EVENT DATE: 20161125
